FAERS Safety Report 9711064 (Version 1)
Quarter: 2013Q4

REPORT INFORMATION
  Report Type: Spontaneous
  Country: US (occurrence: US)
  Receive Date: 20131126
  Receipt Date: 20131126
  Transmission Date: 20140711
  Serious: No
  Sender: FDA-Public Use
  Company Number: US-BRISTOL-MYERS SQUIBB COMPANY-19044353

PATIENT
  Age: 64 Year
  Sex: Male
  Weight: 77.55 kg

DRUGS (3)
  1. BYDUREON [Suspect]
     Indication: TYPE 2 DIABETES MELLITUS
  2. METFORMIN [Concomitant]
  3. OMEPRAZOLE [Concomitant]

REACTIONS (2)
  - Injection site nodule [Recovering/Resolving]
  - Weight decreased [Unknown]
